FAERS Safety Report 4398319-6 (Version None)
Quarter: 2004Q2

REPORT INFORMATION
  Report Type: 
  Country: None (occurrence: None)
  Receive Date: 20040621
  Receipt Date: 20040113
  Transmission Date: 20050107
  Serious: Yes (Other)
  Sender: FDA-Public Use
  Company Number: USA-2004-0012473

PATIENT
  Age: 57 Year
  Sex: Male

DRUGS (6)
  1. OXYCONTIN HYDROCHLORIDE (SIMILAR TO NDA 20-553) (OXYCODONE HYDROCHLORI [Suspect]
  2. HYDROCODONE BITARTRATE [Suspect]
  3. COCAINE (COCAINE) [Suspect]
  4. VALIUM [Suspect]
  5. AMBIEN [Suspect]
  6. MARIJUANA (CANNABIS) [Suspect]

REACTIONS (1)
  - DRUG ABUSER [None]
